FAERS Safety Report 15854493 (Version 1)
Quarter: 2019Q1

REPORT INFORMATION
  Report Type: Spontaneous
  Country: US (occurrence: US)
  Receive Date: 20190122
  Receipt Date: 20190122
  Transmission Date: 20190417
  Serious: Yes (Disabling)
  Sender: FDA-Public Use
  Company Number: None

PATIENT
  Age: 32 Year
  Sex: Female
  Weight: 58.5 kg

DRUGS (1)
  1. AUBAGIO [Suspect]
     Active Substance: TERIFLUNOMIDE
     Indication: MULTIPLE SCLEROSIS
     Dosage: ?          QUANTITY:1 TABLET(S);?
     Route: 048
     Dates: start: 20181206, end: 20181225

REACTIONS (7)
  - Dyspnoea [None]
  - Decreased appetite [None]
  - Pruritus [None]
  - Hepatic enzyme increased [None]
  - Faeces discoloured [None]
  - Vomiting [None]
  - White blood cell count decreased [None]

NARRATIVE: CASE EVENT DATE: 20181206
